FAERS Safety Report 7200571-6 (Version None)
Quarter: 2010Q4

REPORT INFORMATION
  Report Type: 
  Country: None (occurrence: None)
  Receive Date: 20101228
  Receipt Date: 20101214
  Transmission Date: 20110411
  Serious: Yes (Death, Hospitalization)
  Sender: FDA-Public Use
  Company Number: HK-MYLANLABS-2010S1023225

PATIENT
  Age: 57 Year
  Sex: Female

DRUGS (1)
  1. NIFEDIPINE [Suspect]
     Indication: OVERDOSE
     Dosage: UNKNOWN AMOUNT OF SUSTAINED-RELEASE NIFEDIPINE
     Route: 065

REACTIONS (5)
  - COLON GANGRENE [None]
  - HYPERGLYCAEMIA [None]
  - HYPOTENSION [None]
  - INTESTINAL ISCHAEMIA [None]
  - OVERDOSE [None]
